FAERS Safety Report 4542796-4 (Version None)
Quarter: 2004Q4

REPORT INFORMATION
  Report Type: 
  Country: None (occurrence: None)
  Receive Date: 20041231
  Receipt Date: 20041223
  Transmission Date: 20050328
  Serious: Yes (Hospitalization)
  Sender: FDA-Public Use
  Company Number: US-ABBOTT-04P-163-0284756-00

PATIENT
  Age: 38 Year
  Sex: Female

DRUGS (5)
  1. VALPROATE SODIUM [Suspect]
     Indication: CONVULSION
     Route: 065
     Dates: start: 19890101
  2. VALPROATE SODIUM [Suspect]
     Dates: end: 20020401
  3. CARBAMAZEPINE [Suspect]
     Indication: CONVULSION
     Route: 065
     Dates: start: 19840101, end: 20011201
  4. CARNITINE [Concomitant]
     Indication: DRUG USE FOR UNKNOWN INDICATION
     Route: 065
  5. L-THYROXINE [Concomitant]
     Indication: HYPOTHYROIDISM
     Route: 065

REACTIONS (9)
  - ADRENAL INSUFFICIENCY [None]
  - ANOREXIA [None]
  - APLASIA PURE RED CELL [None]
  - BONE MARROW DEPRESSION [None]
  - CONVULSION [None]
  - DEMENTIA [None]
  - PANCYTOPENIA [None]
  - THROMBOCYTOPENIA [None]
  - WEIGHT DECREASED [None]
